FAERS Safety Report 19649920 (Version 1)
Quarter: 2021Q3

REPORT INFORMATION
  Report Type: Report from Study
  Country: CO (occurrence: CO)
  Receive Date: 20210802
  Receipt Date: 20210802
  Transmission Date: 20211014
  Serious: Yes (Other)
  Sender: FDA-Public Use
  Company Number: NVSC2021CO145815

PATIENT
  Age: 82 Year
  Sex: Male
  Weight: 61 kg

DRUGS (6)
  1. REVOLADE [Suspect]
     Active Substance: ELTROMBOPAG OLAMINE
     Dosage: 150 MG (DAILY)
     Route: 048
     Dates: start: 20210603
  2. CICLOSPORIN [Concomitant]
     Active Substance: CYCLOSPORINE
     Indication: IMMUNOSUPPRESSION
     Dosage: 150 MG, DAILY (STARTED 1 MONTH AGO)
     Route: 048
  3. VITAMIN B12 [Concomitant]
     Active Substance: CYANOCOBALAMIN
     Indication: PRODUCT USED FOR UNKNOWN INDICATION
     Dosage: UNK
     Route: 065
  4. REVOLADE [Suspect]
     Active Substance: ELTROMBOPAG OLAMINE
     Indication: APLASTIC ANAEMIA
     Dosage: UNK
     Route: 048
  5. FOLIC ACID. [Concomitant]
     Active Substance: FOLIC ACID
     Indication: PRODUCT USED FOR UNKNOWN INDICATION
     Dosage: 1 MG, DAILY
     Route: 048
     Dates: start: 202104
  6. LEVOTHYROXINE. [Concomitant]
     Active Substance: LEVOTHYROXINE
     Indication: HYPOTHYROIDISM
     Dosage: 6.5 UG, DAILY (STARTED 3 YEARS AGO)
     Route: 065

REACTIONS (13)
  - Yellow skin [Unknown]
  - Dyspepsia [Unknown]
  - Decreased appetite [Unknown]
  - Platelet count decreased [Unknown]
  - Malaise [Unknown]
  - Diarrhoea [Unknown]
  - Blood bilirubin increased [Unknown]
  - Haemoglobin decreased [Unknown]
  - Rebound effect [Unknown]
  - Drug ineffective [Unknown]
  - Haemoglobin abnormal [Unknown]
  - Abdominal discomfort [Unknown]
  - Flatulence [Unknown]

NARRATIVE: CASE EVENT DATE: 20210614
